FAERS Safety Report 19164047 (Version 2)
Quarter: 2021Q2

REPORT INFORMATION
  Report Type: Spontaneous
  Country: US (occurrence: US)
  Receive Date: 20210421
  Receipt Date: 20210426
  Transmission Date: 20210717
  Serious: Yes (Other)
  Sender: FDA-Public Use
  Company Number: US-SA-2021SA129213

PATIENT
  Age: 45 Year
  Sex: Female

DRUGS (2)
  1. DUPILUMAB [Suspect]
     Active Substance: DUPILUMAB
     Indication: DERMATITIS ATOPIC
     Dosage: 300 MG, QOW
     Route: 058
  2. DUPILUMAB [Suspect]
     Active Substance: DUPILUMAB
     Dosage: 300 MG, QW
     Route: 058

REACTIONS (6)
  - Vision blurred [Recovered/Resolved]
  - Iridocyclitis [Recovered/Resolved]
  - Eye inflammation [Recovered/Resolved]
  - Uveitis [Recovered/Resolved]
  - Off label use [Recovered/Resolved]
  - Cystoid macular oedema [Recovering/Resolving]
